FAERS Safety Report 5607341-0 (Version None)
Quarter: 2008Q1

REPORT INFORMATION
  Report Type: 
  Country: None (occurrence: None)
  Receive Date: 20080130
  Receipt Date: 20080123
  Transmission Date: 20080703
  Serious: Yes (Other)
  Sender: FDA-Public Use
  Company Number: PL-JNJFOC-20080105825

PATIENT
  Sex: Male

DRUGS (1)
  1. RISPERDAL [Suspect]
     Indication: DRUG USE FOR UNKNOWN INDICATION

REACTIONS (6)
  - AGITATION [None]
  - DIABETES MELLITUS [None]
  - INSOMNIA [None]
  - PAIN IN EXTREMITY [None]
  - RESTLESSNESS [None]
  - WEIGHT INCREASED [None]
